FAERS Safety Report 12947370 (Version 2)
Quarter: 2016Q4

REPORT INFORMATION
  Report Type: Spontaneous
  Country: JP (occurrence: JP)
  Receive Date: 20161116
  Receipt Date: 20161123
  Transmission Date: 20170207
  Serious: Yes (Other)
  Sender: FDA-Public Use
  Company Number: JP-PFIZER INC-2016529356

PATIENT
  Age: 69 Year
  Sex: Male
  Weight: 60 kg

DRUGS (26)
  1. CAMPTO [Suspect]
     Active Substance: IRINOTECAN
     Dosage: 200 MG, ONCE A DAY
     Route: 041
     Dates: start: 20141217, end: 20141217
  2. CAMPTO [Suspect]
     Active Substance: IRINOTECAN
     Dosage: 200 MG, ONCE A DAY
     Route: 041
     Dates: start: 20150204, end: 20150204
  3. ELPLAT [Suspect]
     Active Substance: OXALIPLATIN
     Dosage: 140 MG, ONCE A DAY
     Route: 041
     Dates: start: 20150225, end: 20150225
  4. CAMPTO [Suspect]
     Active Substance: IRINOTECAN
     Dosage: 200 MG, ONCE A DAY
     Route: 041
     Dates: start: 20150107, end: 20150107
  5. ELPLAT [Suspect]
     Active Substance: OXALIPLATIN
     Dosage: 140 MG, ONCE A DAY
     Route: 041
     Dates: start: 20141105, end: 20141105
  6. ELPLAT [Suspect]
     Active Substance: OXALIPLATIN
     Dosage: 140 MG, ONCE A DAY
     Route: 041
     Dates: start: 20141119, end: 20141119
  7. ELPLAT [Suspect]
     Active Substance: OXALIPLATIN
     Dosage: 140 MG, ONCE A DAY
     Route: 041
     Dates: start: 20150408, end: 20150408
  8. ELPLAT [Suspect]
     Active Substance: OXALIPLATIN
     Dosage: 140 MG, ONCE A DAY
     Route: 041
     Dates: start: 20150311, end: 20150311
  9. CAMPTO [Suspect]
     Active Substance: IRINOTECAN
     Indication: PANCREATIC CARCINOMA
     Dosage: 250 MG, (148.8 MG/M2) ONCE A DAY
     Route: 041
     Dates: start: 20141015, end: 20141015
  10. ELPLAT [Suspect]
     Active Substance: OXALIPLATIN
     Dosage: 140 MG, ONCE A DAY
     Route: 041
     Dates: start: 20140204, end: 20140204
  11. ELPLAT [Suspect]
     Active Substance: OXALIPLATIN
     Dosage: 140 MG, ONCE A DAY
     Route: 041
     Dates: start: 20150325, end: 20150325
  12. CAMPTO [Suspect]
     Active Substance: IRINOTECAN
     Dosage: 200 MG, ONCE A DAY
     Route: 041
     Dates: start: 20150121, end: 20150121
  13. ELPLAT [Suspect]
     Active Substance: OXALIPLATIN
     Dosage: 140 MG, ONCE A DAY
     Route: 041
     Dates: start: 20150107, end: 20150107
  14. CAMPTO [Suspect]
     Active Substance: IRINOTECAN
     Dosage: 200 MG, ONCE A DAY
     Route: 041
     Dates: start: 20141119, end: 20141119
  15. CAMPTO [Suspect]
     Active Substance: IRINOTECAN
     Dosage: 200 MG, ONCE A DAY
     Route: 041
     Dates: start: 20141203, end: 20141203
  16. CAMPTO [Suspect]
     Active Substance: IRINOTECAN
     Dosage: 200 MG, ONCE A DAY
     Route: 041
     Dates: start: 20150311, end: 20150311
  17. 5-FU [Concomitant]
     Active Substance: FLUOROURACIL
     Indication: PANCREATIC CARCINOMA
     Dosage: 4000 MG/BODY/D1-2; (2381 MG/M2/D1-2)
     Route: 041
     Dates: start: 20141015, end: 20150408
  18. CAMPTO [Suspect]
     Active Substance: IRINOTECAN
     Dosage: 200 MG, ONCE A DAY
     Route: 041
     Dates: start: 20150225, end: 20150225
  19. CAMPTO [Suspect]
     Active Substance: IRINOTECAN
     Dosage: 200 MG, ONCE A DAY
     Route: 041
     Dates: start: 20150325, end: 20150325
  20. CAMPTO [Suspect]
     Active Substance: IRINOTECAN
     Dosage: 200 MG, ONCE A DAY
     Route: 041
     Dates: start: 20150408, end: 20150408
  21. ELPLAT [Suspect]
     Active Substance: OXALIPLATIN
     Dosage: 140 MG, ONCE A DAY
     Route: 041
     Dates: start: 20141203, end: 20141203
  22. ELPLAT [Suspect]
     Active Substance: OXALIPLATIN
     Dosage: 140 MG, ONCE A DAY
     Route: 041
     Dates: start: 20150121, end: 20150121
  23. LEVOFOLINATE CALCIUM [Concomitant]
     Active Substance: LEVOLEUCOVORIN CALCIUM
     Indication: PANCREATIC CARCINOMA
     Dosage: 330 MG, (148.8 MG/M2)
     Route: 041
     Dates: start: 20141015, end: 20150408
  24. CAMPTO [Suspect]
     Active Substance: IRINOTECAN
     Dosage: 200 MG, (119 MG/M2) ONCE A DAY
     Route: 041
     Dates: start: 20141105, end: 20141105
  25. ELPLAT [Suspect]
     Active Substance: OXALIPLATIN
     Indication: PANCREATIC CARCINOMA
     Dosage: 140 MG, (83.3 MG/M2) ONCE A DAY
     Route: 041
     Dates: start: 20141015, end: 20141015
  26. ELPLAT [Suspect]
     Active Substance: OXALIPLATIN
     Dosage: 140 MG, ONCE A DAY
     Route: 041
     Dates: start: 20141217, end: 20141217

REACTIONS (10)
  - Nausea [Unknown]
  - Peripheral sensory neuropathy [Unknown]
  - Neutrophil count decreased [Unknown]
  - Decreased appetite [Unknown]
  - Diarrhoea [Unknown]
  - White blood cell count decreased [Unknown]
  - Stomatitis [Unknown]
  - Pyrexia [Unknown]
  - Vomiting [Unknown]
  - Fatigue [Unknown]

NARRATIVE: CASE EVENT DATE: 20141029
